FAERS Safety Report 8308580-0 (Version None)
Quarter: 2012Q2

REPORT INFORMATION
  Report Type: 
  Country: None (occurrence: None)
  Receive Date: 20120424
  Receipt Date: 20120410
  Transmission Date: 20120825
  Serious: Yes (Hospitalization, Other)
  Sender: FDA-Public Use
  Company Number: BR-ROCHE-800011

PATIENT
  Sex: Male

DRUGS (22)
  1. DIMETHICONE [Concomitant]
     Route: 065
  2. ALKERAN [Concomitant]
  3. DRAMIN [Concomitant]
  4. OMEPRAZOLE [Concomitant]
  5. THALIDOMIDE [Concomitant]
  6. INSULIN HUMAN [Concomitant]
  7. VITAMIN D [Concomitant]
  8. MORPHINE SULFATE [Concomitant]
  9. TALIDOMIDE [Concomitant]
  10. MELPHALAN HYDROCHLORIDE [Suspect]
     Indication: PRIMARY AMYLOIDOSIS
  11. PREDNISONE TAB [Concomitant]
  12. LEVOTHYROXINE SODIUM [Concomitant]
  13. NPH INSULIN [Concomitant]
  14. MABTHERA [Suspect]
     Indication: PRODUCT USED FOR UNKNOWN INDICATION
     Dosage: DOSE, FORM FREQUENCY NOT REPORTED.
     Route: 042
     Dates: start: 20110701, end: 20110715
  15. ACETAMINOPHEN [Concomitant]
  16. DOMPERIDONE [Concomitant]
  17. PRATIPRAZOL [Concomitant]
  18. PREDNISONE TAB [Concomitant]
  19. AMOXICILLIN AND CLAVULANATE POTASSIUM [Concomitant]
  20. MELPHALAN HYDROCHLORIDE [Suspect]
     Indication: PRODUCT USED FOR UNKNOWN INDICATION
  21. CALCIUM CARBONATE [Concomitant]
  22. CAPTOPRIL [Concomitant]

REACTIONS (18)
  - IMMOBILE [None]
  - PYREXIA [None]
  - PAIN [None]
  - DRUG INEFFECTIVE [None]
  - OSTEOPOROSIS [None]
  - RESPIRATORY TRACT INFECTION [None]
  - SYNCOPE [None]
  - HAEMORRHAGE SUBCUTANEOUS [None]
  - APPETITE DISORDER [None]
  - NAUSEA [None]
  - PNEUMONIA [None]
  - NEUTROPENIA [None]
  - BACK PAIN [None]
  - FRACTURE [None]
  - WEIGHT DECREASED [None]
  - DYSPHAGIA [None]
  - ABASIA [None]
  - INFLUENZA [None]
